FAERS Safety Report 20751931 (Version 1)
Quarter: 2022Q2

REPORT INFORMATION
  Report Type: Spontaneous
  Country: US (occurrence: US)
  Receive Date: 20220426
  Receipt Date: 20220426
  Transmission Date: 20220721
  Serious: Yes (Hospitalization)
  Sender: FDA-Public Use
  Company Number: US-PFIZER INC-202200622233

PATIENT
  Age: 83 Year
  Sex: Female
  Weight: 58.51 kg

DRUGS (1)
  1. PAXLOVID [Suspect]
     Active Substance: NIRMATRELVIR\RITONAVIR
     Indication: COVID-19 treatment
     Dosage: [PF-07321332 300 MG]/[RITONAVIR 100 MG]; 2X/DAY
     Dates: start: 20220415, end: 20220419

REACTIONS (11)
  - Agitation [Unknown]
  - Insomnia [Unknown]
  - Nightmare [Unknown]
  - Dry eye [Unknown]
  - Headache [Unknown]
  - Decreased appetite [Unknown]
  - Hunger [Unknown]
  - Tremor [Unknown]
  - Malaise [Unknown]
  - Feeling abnormal [Unknown]
  - Off label use [Unknown]

NARRATIVE: CASE EVENT DATE: 20220420
